FAERS Safety Report 8545551-3 (Version None)
Quarter: 2012Q3

REPORT INFORMATION
  Report Type: 
  Country: None (occurrence: None)
  Receive Date: 20120727
  Receipt Date: 20111021
  Transmission Date: 20120928
  Serious: No
  Sender: FDA-Public Use
  Company Number: US-ASTRAZENECA-2011SE64052

PATIENT
  Sex: Female
  Weight: 44 kg

DRUGS (17)
  1. PEMAZEPAM [Concomitant]
     Indication: TENSION
  2. CARISOPRODOL [Concomitant]
  3. FENTANYL [Concomitant]
     Indication: PAIN
     Route: 062
  4. MULTI-VITAMINS [Concomitant]
     Dosage: ONE TABLET OD
  5. BIFTOLI [Concomitant]
     Indication: HYPERTENSION
  6. PANTOPRAZOLE [Concomitant]
     Indication: GASTROOESOPHAGEAL REFLUX DISEASE
  7. FLUOXETINE HCL [Concomitant]
     Indication: DEPRESSION
  8. PLUTONICS [Concomitant]
  9. LEVOTHYROXINE SODIUM [Concomitant]
     Indication: THYROID DISORDER
  10. REMICADE [Concomitant]
     Indication: ARTHRITIS
     Dosage: FOR 4 HOURS, ONCE EVERY 6 WEEKS
  11. CALCIUM [Concomitant]
  12. POT-CHLOR [Concomitant]
     Indication: MINERAL SUPPLEMENTATION
  13. VITAMIN TAB [Concomitant]
  14. SEROQUEL [Suspect]
     Indication: SLEEP DISORDER
     Route: 048
     Dates: start: 20100901
  15. ALPROAZOLAM [Concomitant]
     Indication: ANXIETY
  16. METHOTREXATE [Concomitant]
  17. REMICADE [Concomitant]
     Indication: SYSTEMIC LUPUS ERYTHEMATOSUS
     Dosage: FOR 4 HOURS, ONCE EVERY 6 WEEKS

REACTIONS (7)
  - THERAPEUTIC RESPONSE UNEXPECTED [None]
  - DEPRESSION [None]
  - RHEUMATOID ARTHRITIS [None]
  - SYSTEMIC LUPUS ERYTHEMATOSUS [None]
  - THYROID DISORDER [None]
  - AUTOIMMUNE HEPATITIS [None]
  - OFF LABEL USE [None]
